FAERS Safety Report 8382058-0 (Version None)
Quarter: 2012Q2

REPORT INFORMATION
  Report Type: 
  Country: None (occurrence: None)
  Receive Date: 20120524
  Receipt Date: 20120517
  Transmission Date: 20120825
  Serious: Yes (Other)
  Sender: FDA-Public Use
  Company Number: BR-GENZYME-RENA-1001455

PATIENT

DRUGS (7)
  1. ATENOLOL [Concomitant]
     Indication: HYPERTENSION
     Dosage: 50 UNK, QD
     Route: 065
     Dates: end: 20120121
  2. ADALAT [Concomitant]
     Indication: HYPERTENSION
     Dosage: 20 UNK, TID
     Route: 065
     Dates: end: 20120121
  3. EPOETIN ALFA [Concomitant]
     Indication: ANAEMIA
     Dosage: 4000 U, 3X/W
     Route: 065
  4. RENAGEL [Suspect]
     Indication: HYPERPHOSPHATAEMIA
     Dosage: 0.8 G, QD
     Route: 048
     Dates: start: 20110501, end: 20120121
  5. VITAMIN B COMPLEX CAP [Concomitant]
     Indication: PRODUCT USED FOR UNKNOWN INDICATION
     Dosage: UNK
     Route: 065
  6. CAPTOPRIL [Concomitant]
     Indication: HYPERTENSION
     Dosage: 50 UNK, TID
     Route: 065
     Dates: end: 20120121
  7. NORIPURUM [Concomitant]
     Indication: ANAEMIA
     Dosage: 100 UNK, 2 PER MONTH
     Route: 065

REACTIONS (3)
  - PRE-ECLAMPSIA [None]
  - MATERNAL EXPOSURE DURING PREGNANCY [None]
  - HYPERTENSION [None]
